FAERS Safety Report 5025006-3 (Version None)
Quarter: 2006Q2

REPORT INFORMATION
  Report Type: 
  Country: None (occurrence: None)
  Receive Date: 20060613
  Receipt Date: 20060606
  Transmission Date: 20061013
  Serious: Yes (Other)
  Sender: FDA-Public Use
  Company Number: CA-ABBOTT-06P-028-0335474-00

PATIENT
  Sex: Male

DRUGS (14)
  1. RITONAVIR SOFT GELATIN CAPSULES [Suspect]
     Indication: ACQUIRED IMMUNODEFICIENCY SYNDROME
     Route: 048
     Dates: start: 20040402
  2. TIPRANAVIR [Concomitant]
     Indication: ACQUIRED IMMUNODEFICIENCY SYNDROME
     Route: 048
     Dates: start: 20040402
  3. FUZEON [Concomitant]
     Indication: ACQUIRED IMMUNODEFICIENCY SYNDROME
     Route: 058
     Dates: start: 20040402
  4. DIDANOSINE [Concomitant]
     Indication: DRUG USE FOR UNKNOWN INDICATION
  5. DELAVIRDINE MESYLATE [Concomitant]
     Indication: DRUG USE FOR UNKNOWN INDICATION
  6. VIREAD [Concomitant]
     Indication: DRUG USE FOR UNKNOWN INDICATION
  7. RITONAVIR [Concomitant]
     Indication: DRUG USE FOR UNKNOWN INDICATION
  8. ATOVAQUONE [Concomitant]
     Indication: DRUG USE FOR UNKNOWN INDICATION
  9. ZITHROMAX [Concomitant]
     Indication: DRUG USE FOR UNKNOWN INDICATION
  10. ITRACONAZOLE [Concomitant]
     Indication: DRUG USE FOR UNKNOWN INDICATION
  11. ESOMEPRAZOLE [Concomitant]
     Indication: DRUG USE FOR UNKNOWN INDICATION
  12. NYSTATIN [Concomitant]
     Indication: DRUG USE FOR UNKNOWN INDICATION
  13. LORAZEPAM [Concomitant]
     Indication: DRUG USE FOR UNKNOWN INDICATION
  14. HYDROXYZINE HYDROCHLORIDE [Concomitant]
     Indication: DRUG USE FOR UNKNOWN INDICATION

REACTIONS (1)
  - JUDGEMENT IMPAIRED [None]
